FAERS Safety Report 7505874-3 (Version None)
Quarter: 2011Q2

REPORT INFORMATION
  Report Type: 
  Country: None (occurrence: None)
  Receive Date: 20110526
  Receipt Date: 20110516
  Transmission Date: 20111010
  Serious: Yes (Death)
  Sender: FDA-Public Use
  Company Number: US-ELI_LILLY_AND_COMPANY-US201103005339

PATIENT
  Age: 85 Year
  Sex: Female
  Weight: 72.109 kg

DRUGS (10)
  1. ASPIRIN [Concomitant]
  2. OXYGEN [Concomitant]
     Dosage: 2 L, NIGHT
  3. VITAMIN D [Concomitant]
  4. AMIODARONE HCL [Concomitant]
  5. OMEPRAZOLE [Concomitant]
  6. CELEBREX [Concomitant]
  7. FORTEO [Suspect]
     Indication: OSTEOPOROSIS
     Dosage: 20 UG, QD
     Route: 058
     Dates: start: 20100301, end: 20101201
  8. SERTRALINE HYDROCHLORIDE [Concomitant]
  9. EVISTA [Concomitant]
  10. SIMVASTATIN [Concomitant]

REACTIONS (1)
  - ACUTE RESPIRATORY DISTRESS SYNDROME [None]
